FAERS Safety Report 4659374-9 (Version None)
Quarter: 2005Q2

REPORT INFORMATION
  Report Type: 
  Country: None (occurrence: None)
  Receive Date: 20050510
  Receipt Date: 20050426
  Transmission Date: 20051028
  Serious: Yes (Life-Threatening, Hospitalization)
  Sender: FDA-Public Use
  Company Number: MEDI-0003249

PATIENT
  Age: 46 Year
  Sex: Male
  Weight: 51 kg

DRUGS (8)
  1. ETHYOL [Suspect]
     Indication: RADIOTHERAPY
     Dosage: SEE IMAGE
     Route: 040
     Dates: start: 20050304, end: 20050314
  2. ETHYOL [Suspect]
     Indication: RADIOTHERAPY
     Dosage: SEE IMAGE
     Route: 040
     Dates: start: 20050329, end: 20050329
  3. RADIATION THERAPY [Concomitant]
  4. ENALAPRIL MALEATE [Concomitant]
  5. TRIZIVIR [Concomitant]
  6. NYSTATIN [Concomitant]
  7. TRAMADOL HCL [Concomitant]
  8. ANTI-INFLAMMATORY DRUGS [Concomitant]

REACTIONS (3)
  - CARDIAC ARREST [None]
  - DEHYDRATION [None]
  - HYPOTENSION [None]
